FAERS Safety Report 4899318-8 (Version None)
Quarter: 2006Q1

REPORT INFORMATION
  Report Type: 
  Country: None (occurrence: None)
  Receive Date: 20060131
  Receipt Date: 20050920
  Transmission Date: 20060701
  Serious: Yes (Hospitalization)
  Sender: FDA-Public Use
  Company Number: BE 2005 0011

PATIENT
  Age: 78 Year
  Sex: Female

DRUGS (5)
  1. DOTAREM -MEGLUMINE GADOTERATE [Suspect]
     Indication: NUCLEAR MAGNETIC RESONANCE IMAGING
     Dosage: 20 ML PER DAY INTRA-VEINOUS
     Dates: start: 20050825, end: 20050825
  2. CORUNO -MOLSIDOMINE [Concomitant]
  3. ALLOPURINOL [Concomitant]
  4. LIPITOR -ATORVASTATINE [Concomitant]
  5. FRUSAMIL -AMILORIDE 5 MG/FUROSEMIDE 40 MG [Concomitant]

REACTIONS (8)
  - HEADACHE [None]
  - INFLAMMATION [None]
  - PRURITUS [None]
  - PYREXIA [None]
  - RASH ERYTHEMATOUS [None]
  - RASH PAPULAR [None]
  - SKIN REACTION [None]
  - URTICARIA [None]
